FAERS Safety Report 25397856 (Version 1)
Quarter: 2025Q2

REPORT INFORMATION
  Report Type: Spontaneous
  Country: US (occurrence: US)
  Receive Date: 20250604
  Receipt Date: 20250604
  Transmission Date: 20250717
  Serious: No
  Sender: GALPHARM INTERNATIONAL
  Company Number: US-PERRIGO-24US011695

PATIENT
  Age: 83 Year
  Sex: Female
  Weight: 97.052 kg

DRUGS (2)
  1. MINOXIDIL [Suspect]
     Active Substance: MINOXIDIL
     Indication: Alopecia
     Route: 061
     Dates: start: 20241107, end: 20241208
  2. MINOXIDIL [Suspect]
     Active Substance: MINOXIDIL
     Route: 061
     Dates: start: 20241209

REACTIONS (1)
  - Inappropriate schedule of product administration [Unknown]

NARRATIVE: CASE EVENT DATE: 20241209
